FAERS Safety Report 9962140 (Version 1)
Quarter: 2014Q1

REPORT INFORMATION
  Report Type: Spontaneous
  Country: US (occurrence: None)
  Receive Date: 20140304
  Receipt Date: 20140304
  Transmission Date: 20141002
  Serious: Yes (Hospitalization)
  Sender: FDA-Public Use
  Company Number: None

PATIENT
  Age: 68 Year
  Sex: Male
  Weight: 90 kg

DRUGS (2)
  1. PACLITAXEL (TAXOL) [Suspect]
     Dates: end: 20140224
  2. CARBOPLATIN [Suspect]
     Dates: end: 20140224

REACTIONS (1)
  - Back pain [None]
